FAERS Safety Report 8713695 (Version 2)
Quarter: 2012Q4

REPORT INFORMATION
  Report Type: 
  Country: DE (occurrence: DE)
  Receive Date: 20120808
  Receipt Date: 20120830
  Transmission Date: 20130627
  Serious: Yes (Other)
  Sender: FDA-Public Use
  Company Number: DE-ELI_LILLY_AND_COMPANY-DE201207008010

PATIENT
  Age: 40 Year
  Sex: Female

DRUGS (2)
  1. CYMBALTA [Suspect]
     Dosage: 60mg, unknown
     Route: 048
  2. XERISTAR [Suspect]
     Indication: DEPRESSION
     Dosage: 60mg, unk
     Route: 048

REACTIONS (1)
  - Psychiatric decompensation [Recovering/Resolving]
